FAERS Safety Report 7987716-5 (Version None)
Quarter: 2011Q4

REPORT INFORMATION
  Report Type: 
  Country: None (occurrence: None)
  Receive Date: 20111216
  Receipt Date: 20110429
  Transmission Date: 20120403
  Serious: No
  Sender: FDA-Public Use
  Company Number: US-BRISTOL-MYERS SQUIBB COMPANY-15708282

PATIENT
  Age: 64 Year
  Sex: Female

DRUGS (1)
  1. ABILIFY [Suspect]
     Dosage: FOR A YEAR DOSE WAS REDUCED FROM 2 MG TO 1 MG

REACTIONS (2)
  - MUSCULOSKELETAL PAIN [None]
  - WEIGHT INCREASED [None]
